FAERS Safety Report 12957893 (Version 2)
Quarter: 2016Q4

REPORT INFORMATION
  Report Type: Spontaneous
  Country: US (occurrence: US)
  Receive Date: 20161118
  Receipt Date: 20161121
  Transmission Date: 20170207
  Serious: No
  Sender: FDA-Public Use
  Company Number: US-BIOMARINAP-US-2016-111864

PATIENT
  Age: 5 Year
  Sex: Male

DRUGS (5)
  1. VIMIZIM [Suspect]
     Active Substance: ELOSULFASE ALFA
     Indication: MUCOPOLYSACCHARIDOSIS IV
     Dosage: 35 MG, QW
     Route: 042
     Dates: start: 20161117
  2. HEPARIN PLUS [Concomitant]
     Indication: PREMEDICATION
     Dosage: UNK, SINGLE
     Route: 030
  3. VIMIZIM [Suspect]
     Active Substance: ELOSULFASE ALFA
     Dosage: 30 MG, QW
     Route: 042
     Dates: start: 20140909
  4. INFLUENZA VACCINE [Concomitant]
     Active Substance: INFLUENZA VIRUS VACCINE
     Indication: INFLUENZA IMMUNISATION
     Dosage: UNK
     Dates: start: 20161116, end: 20161116
  5. BENADRYL [Concomitant]
     Active Substance: DIPHENHYDRAMINE HYDROCHLORIDE
     Indication: PREMEDICATION
     Dosage: 12.5 MG, UNK
     Route: 042

REACTIONS (1)
  - Pyrexia [Recovered/Resolved]

NARRATIVE: CASE EVENT DATE: 20161117
